FAERS Safety Report 4791336-3 (Version None)
Quarter: 2005Q4

REPORT INFORMATION
  Report Type: 
  Country: None (occurrence: None)
  Receive Date: 20051007
  Receipt Date: 20050927
  Transmission Date: 20060501
  Serious: Yes (Other)
  Sender: FDA-Public Use
  Company Number: US-JNJFOC-20050706019

PATIENT
  Sex: Female
  Weight: 65.77 kg

DRUGS (20)
  1. REMICADE [Suspect]
     Indication: RHEUMATOID ARTHRITIS
     Route: 042
  2. SYNTHROID [Concomitant]
  3. ATENOLOL [Concomitant]
  4. FOLIC ACID [Concomitant]
  5. HYDROCHLORIDE [Concomitant]
  6. PAROXETINE HCL [Concomitant]
  7. PREDNISONE [Concomitant]
  8. METHOTREXATE [Concomitant]
  9. CHILDREN'S ASPIRIN [Concomitant]
  10. CALCIUM GLUCONATE [Concomitant]
     Dosage: 500 + D
  11. ONE-A-DAY [Concomitant]
  12. ONE-A-DAY [Concomitant]
  13. ONE-A-DAY [Concomitant]
  14. ONE-A-DAY [Concomitant]
  15. ONE-A-DAY [Concomitant]
  16. ONE-A-DAY [Concomitant]
  17. ONE-A-DAY [Concomitant]
  18. ONE-A-DAY [Concomitant]
  19. PRILOSEC [Concomitant]
  20. ACTONEL [Concomitant]

REACTIONS (2)
  - CARDIAC OPERATION [None]
  - INFECTION [None]
